FAERS Safety Report 25725615 (Version 1)
Quarter: 2025Q3

REPORT INFORMATION
  Report Type: Spontaneous
  Country: AU (occurrence: AU)
  Receive Date: 20250826
  Receipt Date: 20250826
  Transmission Date: 20251021
  Serious: Yes (Hospitalization, Other)
  Sender: UNICHEM
  Company Number: AU-UNICHEM LABORATORIES LIMITED-UNI-2025-AU-003099

PATIENT

DRUGS (1)
  1. AMIODARONE [Suspect]
     Active Substance: AMIODARONE
     Indication: Atrial fibrillation
     Route: 065

REACTIONS (3)
  - Cardiac failure [Unknown]
  - Cardiogenic shock [Unknown]
  - Hypothyroidism [Recovering/Resolving]
